FAERS Safety Report 11319809 (Version 1)
Quarter: 2015Q3

REPORT INFORMATION
  Report Type: Spontaneous
  Country: US (occurrence: US)
  Receive Date: 20150729
  Receipt Date: 20150729
  Transmission Date: 20151125
  Serious: No
  Sender: FDA-Public Use
  Company Number: US-ASTRAZENECA-2015SE71396

PATIENT
  Age: 603 Month
  Sex: Female
  Weight: 55.3 kg

DRUGS (2)
  1. OTHER MEDICATIONS [Concomitant]
     Active Substance: UNSPECIFIED INGREDIENT
     Indication: DYSPNOEA
  2. TUDORZA PRESSAIR [Suspect]
     Active Substance: ACLIDINIUM BROMIDE
     Indication: CHRONIC OBSTRUCTIVE PULMONARY DISEASE
     Dosage: 400 UG , TWO TIMES A DAY (1 PUFF IN THE MORNING AND 1 PUFF IN THE EVENING )
     Route: 055
     Dates: start: 2012

REACTIONS (6)
  - Dyspnoea [Unknown]
  - Abnormal behaviour [Unknown]
  - Dysphonia [Unknown]
  - Chest discomfort [Unknown]
  - Product quality issue [Unknown]
  - Weight increased [Unknown]

NARRATIVE: CASE EVENT DATE: 201507
